FAERS Safety Report 6408051-2 (Version None)
Quarter: 2009Q4

REPORT INFORMATION
  Report Type: 
  Country: None (occurrence: None)
  Receive Date: 20091021
  Receipt Date: 20091008
  Transmission Date: 20100525
  Serious: Yes (Hospitalization)
  Sender: FDA-Public Use
  Company Number: US-CELGENEUS-163-21880-09101042

PATIENT

DRUGS (5)
  1. REVLIMID [Suspect]
     Indication: MULTIPLE MYELOMA
     Route: 048
     Dates: start: 20080101
  2. THALOMID [Suspect]
     Indication: MULTIPLE MYELOMA
     Dates: start: 20070101
  3. VELCADE [Suspect]
     Indication: MULTIPLE MYELOMA
     Route: 051
     Dates: start: 20080301
  4. VELCADE [Suspect]
     Route: 051
     Dates: start: 20080101
  5. DECADRON [Suspect]
     Indication: MULTIPLE MYELOMA
     Route: 051
     Dates: start: 20080301

REACTIONS (8)
  - BACK PAIN [None]
  - HERPES ZOSTER [None]
  - MUSCLE ATROPHY [None]
  - NEUROPATHY PERIPHERAL [None]
  - PAIN IN EXTREMITY [None]
  - PLATELET COUNT DECREASED [None]
  - THROMBOSIS [None]
  - WEIGHT DECREASED [None]
